FAERS Safety Report 21117730 (Version 3)
Quarter: 2022Q3

REPORT INFORMATION
  Report Type: Spontaneous
  Country: TH (occurrence: TH)
  Receive Date: 20220722
  Receipt Date: 20220809
  Transmission Date: 20221027
  Serious: Yes (Other)
  Sender: FDA-Public Use
  Company Number: TH-NOVARTISPH-NVSC2022TH161287

PATIENT
  Age: 40 Year
  Sex: Male

DRUGS (45)
  1. SACUBITRIL\VALSARTAN [Suspect]
     Active Substance: SACUBITRIL\VALSARTAN
     Indication: Product used for unknown indication
     Dosage: 0.25 DOSAGE FORM, BID (100)
     Route: 065
     Dates: start: 202108
  2. METOPROLOL [Concomitant]
     Active Substance: METOPROLOL
     Indication: Product used for unknown indication
     Dosage: 0.25 DOSAGE FORM, BID (100)
     Route: 065
     Dates: start: 202108
  3. METOPROLOL [Concomitant]
     Active Substance: METOPROLOL
     Dosage: 0.25 DOSAGE FORM, BID
     Route: 065
     Dates: start: 20220209
  4. METOPROLOL [Concomitant]
     Active Substance: METOPROLOL
     Dosage: 0.25 DOSAGE FORM, BID
     Route: 065
     Dates: start: 20220223
  5. METOPROLOL [Concomitant]
     Active Substance: METOPROLOL
     Dosage: 0.25 DOSAGE FORM, BID
     Route: 065
     Dates: start: 20220303
  6. METOPROLOL [Concomitant]
     Active Substance: METOPROLOL
     Dosage: 0.25 DOSAGE FORM, BID
     Route: 065
     Dates: start: 20220324
  7. METOPROLOL [Concomitant]
     Active Substance: METOPROLOL
     Dosage: 0.25 DOSAGE FORM, BID
     Route: 065
     Dates: start: 20220407
  8. METOPROLOL [Concomitant]
     Active Substance: METOPROLOL
     Dosage: 0.25 DOSAGE FORM, BID
     Route: 065
     Dates: start: 20220407
  9. METOPROLOL [Concomitant]
     Active Substance: METOPROLOL
     Dosage: 0.25 DOSAGE FORM, BID
     Route: 065
  10. DIGOXIN [Concomitant]
     Active Substance: DIGOXIN
     Indication: Product used for unknown indication
     Dosage: 0.5 DOSAGE FORM, QD (0.25)
     Route: 065
     Dates: start: 202108
  11. DIGOXIN [Concomitant]
     Active Substance: DIGOXIN
     Dosage: 0.5 DOSAGE FORM, QD
     Route: 065
     Dates: start: 20220209
  12. DIGOXIN [Concomitant]
     Active Substance: DIGOXIN
     Dosage: 0.5 DOSAGE FORM, QD
     Route: 065
     Dates: start: 20220223
  13. DIGOXIN [Concomitant]
     Active Substance: DIGOXIN
     Dosage: 0.5 DOSAGE FORM, QD
     Route: 065
     Dates: start: 20220303
  14. DIGOXIN [Concomitant]
     Active Substance: DIGOXIN
     Dosage: 1 DOSAGE FORM, QD
     Route: 065
     Dates: start: 20220324
  15. DIGOXIN [Concomitant]
     Active Substance: DIGOXIN
     Dosage: 1 DOSAGE FORM, QD
     Route: 065
     Dates: start: 20220407
  16. DIGOXIN [Concomitant]
     Active Substance: DIGOXIN
     Dosage: 0.5 DOSAGE FORM, QD
     Route: 065
     Dates: start: 20220421
  17. DIGOXIN [Concomitant]
     Active Substance: DIGOXIN
     Dosage: 0.5 DOSAGE FORM, QD
     Route: 065
     Dates: start: 20220505
  18. DIGOXIN [Concomitant]
     Active Substance: DIGOXIN
     Dosage: 0.5 DOSAGE FORM, QD
     Route: 065
     Dates: start: 20220519
  19. DIGOXIN [Concomitant]
     Active Substance: DIGOXIN
     Dosage: 0.5 DOSAGE FORM, QD
     Route: 065
     Dates: start: 20220602
  20. DIGOXIN [Concomitant]
     Active Substance: DIGOXIN
     Dosage: 0.5 DOSAGE FORM, QD
     Route: 065
     Dates: start: 20220616
  21. DIGOXIN [Concomitant]
     Active Substance: DIGOXIN
     Dosage: 0.5 MG, QD
     Route: 065
  22. FUROSEMIDE [Concomitant]
     Active Substance: FUROSEMIDE
     Indication: Product used for unknown indication
     Dosage: 1 DOSAGE FORM, QD
     Route: 042
     Dates: start: 202108
  23. FUROSEMIDE [Concomitant]
     Active Substance: FUROSEMIDE
     Dosage: 80 UNK, QD
     Route: 065
     Dates: start: 20220209
  24. FUROSEMIDE [Concomitant]
     Active Substance: FUROSEMIDE
     Dosage: 120 UNK, QD
     Route: 065
     Dates: start: 20220223
  25. FUROSEMIDE [Concomitant]
     Active Substance: FUROSEMIDE
     Dosage: 80 UNK, QD
     Route: 065
     Dates: start: 20220303
  26. FUROSEMIDE [Concomitant]
     Active Substance: FUROSEMIDE
     Dosage: 250 UNK, QD
     Route: 065
     Dates: start: 20220324
  27. FUROSEMIDE [Concomitant]
     Active Substance: FUROSEMIDE
     Dosage: UNK (500, 250 MG IF BW 60))
     Route: 065
     Dates: start: 20220407
  28. FUROSEMIDE [Concomitant]
     Active Substance: FUROSEMIDE
     Dosage: 250 UNK, QD
     Route: 065
     Dates: start: 20220421
  29. FUROSEMIDE [Concomitant]
     Active Substance: FUROSEMIDE
     Dosage: 125 UNK, QD
     Route: 065
     Dates: start: 20220505
  30. FUROSEMIDE [Concomitant]
     Active Substance: FUROSEMIDE
     Dosage: 80 UNK, QD
     Route: 065
     Dates: start: 20220519
  31. FUROSEMIDE [Concomitant]
     Active Substance: FUROSEMIDE
     Dosage: 40 UNK, QD
     Route: 065
     Dates: start: 20220602
  32. FUROSEMIDE [Concomitant]
     Active Substance: FUROSEMIDE
     Dosage: 60 UNK, QD
     Route: 065
     Dates: start: 20220616
  33. FUROSEMIDE [Concomitant]
     Active Substance: FUROSEMIDE
     Dosage: 3 DOSAGE FORM, BID (2 IN THE MORNING AND 1 IN THE AFTERNOON)
     Route: 065
  34. SPIRONOLACTONE [Concomitant]
     Active Substance: SPIRONOLACTONE
     Indication: Product used for unknown indication
     Dosage: 1 DOSAGE FORM, QD
     Route: 065
     Dates: start: 202108
  35. SPIRONOLACTONE [Concomitant]
     Active Substance: SPIRONOLACTONE
     Dosage: 50 UNK, QD
     Route: 065
     Dates: start: 20220209
  36. SPIRONOLACTONE [Concomitant]
     Active Substance: SPIRONOLACTONE
     Dosage: 50 UNK, QD
     Route: 065
     Dates: start: 20220223
  37. SPIRONOLACTONE [Concomitant]
     Active Substance: SPIRONOLACTONE
     Dosage: 50 UNK, QD
     Route: 065
     Dates: start: 20220303
  38. SPIRONOLACTONE [Concomitant]
     Active Substance: SPIRONOLACTONE
     Dosage: 50 UNK, QD
     Route: 065
     Dates: start: 20220324
  39. SPIRONOLACTONE [Concomitant]
     Active Substance: SPIRONOLACTONE
     Dosage: 50 UNK, QD
     Route: 065
     Dates: start: 20220407
  40. SPIRONOLACTONE [Concomitant]
     Active Substance: SPIRONOLACTONE
     Dosage: 50 UNK, QD
     Route: 065
     Dates: start: 20220421
  41. SPIRONOLACTONE [Concomitant]
     Active Substance: SPIRONOLACTONE
     Dosage: 50 UNK, QD
     Route: 065
     Dates: start: 20220505
  42. SPIRONOLACTONE [Concomitant]
     Active Substance: SPIRONOLACTONE
     Dosage: 50 UNK, QD
     Route: 065
     Dates: start: 20220519
  43. SPIRONOLACTONE [Concomitant]
     Active Substance: SPIRONOLACTONE
     Dosage: 50 UNK, QD
     Route: 065
     Dates: start: 20220602
  44. SPIRONOLACTONE [Concomitant]
     Active Substance: SPIRONOLACTONE
     Dosage: 50 UNK, QD
     Route: 065
     Dates: start: 20220616
  45. SPIRONOLACTONE [Concomitant]
     Active Substance: SPIRONOLACTONE
     Dosage: 1 DOSAGE FORM, BID
     Route: 065

REACTIONS (23)
  - Cardiomyopathy [Unknown]
  - Ascites [Unknown]
  - Hepatomegaly [Unknown]
  - Dyspnoea [Unknown]
  - Peripheral coldness [Unknown]
  - Rales [Unknown]
  - Oedema [Unknown]
  - Blood creatinine increased [Unknown]
  - Blood sodium decreased [Unknown]
  - Respiratory rate increased [Unknown]
  - Blood chloride decreased [Unknown]
  - Heart sounds abnormal [Unknown]
  - N-terminal prohormone brain natriuretic peptide increased [Unknown]
  - QRS axis abnormal [Unknown]
  - Prothrombin level decreased [Unknown]
  - Blood albumin decreased [Unknown]
  - Aspartate aminotransferase increased [Unknown]
  - Alanine aminotransferase increased [Unknown]
  - Blood bilirubin increased [Unknown]
  - Bilirubin conjugated increased [Unknown]
  - Venous pressure jugular increased [Unknown]
  - Prescribed underdose [Unknown]
  - Wrong technique in product usage process [Unknown]

NARRATIVE: CASE EVENT DATE: 20211201
